FAERS Safety Report 6228271-X (Version None)
Quarter: 2009Q2

REPORT INFORMATION
  Report Type: 
  Country: None (occurrence: None)
  Receive Date: 20090612
  Receipt Date: 20090604
  Transmission Date: 20091009
  Serious: Yes (Other)
  Sender: FDA-Public Use
  Company Number: PHHY2009BR22020

PATIENT
  Age: 62 Year
  Sex: Male

DRUGS (1)
  1. FORASEQ [Suspect]
     Dosage: 12/400 MCG

REACTIONS (5)
  - ANOREXIA [None]
  - ASTHENIA [None]
  - FATIGUE [None]
  - LISTLESS [None]
  - TREATMENT NONCOMPLIANCE [None]
